FAERS Safety Report 6282269-4 (Version None)
Quarter: 2009Q3

REPORT INFORMATION
  Report Type: 
  Country: None (occurrence: None)
  Receive Date: 20090724
  Receipt Date: 20090710
  Transmission Date: 20100115
  Serious: Yes (Death)
  Sender: FDA-Public Use
  Company Number: NL-NAPPMUNDI-GBR-2009-0005350

PATIENT
  Sex: Male

DRUGS (6)
  1. OXYCONTIN [Suspect]
     Indication: PAIN
     Dosage: 10 MG, TID
     Route: 065
     Dates: start: 20081107
  2. OXYCONTIN [Suspect]
     Dosage: 5 MG, TID
     Route: 065
     Dates: start: 20081014, end: 20081107
  3. PARACETAMOL [Concomitant]
     Dosage: 1000 MG, TID
     Route: 065
  4. TEMAZEPAM [Concomitant]
     Dosage: 20 MG, DAILY
     Route: 065
  5. SPIRIVA [Concomitant]
     Dosage: 18 MCG, DAILY
     Route: 065
  6. MOVICOLON [Concomitant]
     Dosage: 1 DF, SACHET
     Route: 065

REACTIONS (1)
  - DEATH [None]
